FAERS Safety Report 6419728-7 (Version None)
Quarter: 2009Q4

REPORT INFORMATION
  Report Type: 
  Country: None (occurrence: None)
  Receive Date: 20091029
  Receipt Date: 20091023
  Transmission Date: 20100525
  Serious: Yes (Hospitalization)
  Sender: FDA-Public Use
  Company Number: US-AVENTIS-200918071US

PATIENT
  Sex: Female
  Weight: 126.35 kg

DRUGS (18)
  1. LANTUS [Suspect]
     Dosage: DOSE: UNK
     Route: 058
     Dates: start: 20080711, end: 20080717
  2. LANTUS [Suspect]
     Route: 058
     Dates: start: 20080717, end: 20090904
  3. ALBUTEROL [Concomitant]
     Dosage: DOSE: 1-2 PUFFS Q4H TO 6H
     Route: 055
     Dates: start: 20080930
  4. BYETTA [Concomitant]
     Dosage: DOSE: 5 MCG 30 MINUTES BEFORE BREAKFAST AND DINNER
     Route: 058
     Dates: start: 20080711
  5. BYETTA [Concomitant]
     Dates: start: 20080930, end: 20081113
  6. COQ10 [Concomitant]
     Dosage: DOSE: AT DINNER TIME
     Dates: start: 20080711
  7. GABAPENTIN [Concomitant]
     Route: 048
  8. LORTAB [Concomitant]
     Dosage: DOSE: 5-500 MG
     Route: 048
  9. MUCINEX [Concomitant]
  10. NOVOLOG [Concomitant]
     Dosage: DOSE: 2.5-3 UNITS SLIDING SCALE
     Dates: start: 20080711
  11. PERFOROMIST [Concomitant]
     Dosage: DOSE: 1 VIAL IN NEBULIZER Q12H
     Dates: start: 20080930
  12. VITAMIN E [Concomitant]
     Dosage: DOSE: UNK
     Dates: start: 20080711
  13. IRON [Concomitant]
     Dosage: DOSE: UNK
     Dates: start: 20080711, end: 20090903
  14. VIT D [Concomitant]
     Dosage: DOSE: 50,000
     Route: 048
     Dates: start: 20090324, end: 20090903
  15. LONOX [Concomitant]
     Dosage: DOSE: UNK
     Dates: start: 20080711, end: 20080930
  16. CULTURELLE [Concomitant]
     Dosage: DOSE: UNK
     Dates: start: 20080711
  17. O2 [Concomitant]
     Dosage: DOSE: UNK
  18. VITAMIN A [Concomitant]
     Dosage: DOSE: UNK
     Dates: start: 20080711

REACTIONS (3)
  - MIGRAINE [None]
  - OEDEMA PERIPHERAL [None]
  - PRURITUS [None]
